FAERS Safety Report 17597109 (Version 1)
Quarter: 2020Q1

REPORT INFORMATION
  Report Type: Spontaneous
  Country: AT (occurrence: AT)
  Receive Date: 20200330
  Receipt Date: 20200330
  Transmission Date: 20200409
  Serious: Yes (Disabling, Other)
  Sender: FDA-Public Use
  Company Number: AT-TEVA-2020-AT-1211335

PATIENT
  Age: 69 Year
  Sex: Female

DRUGS (1)
  1. CIPROFLOXACIN. [Suspect]
     Active Substance: CIPROFLOXACIN
     Dosage: 2X1
     Dates: start: 20181220, end: 20181230

REACTIONS (2)
  - Tenosynovitis [Not Recovered/Not Resolved]
  - Tendon disorder [Not Recovered/Not Resolved]
